FAERS Safety Report 13983197 (Version 1)
Quarter: 2017Q3

REPORT INFORMATION
  Report Type: Spontaneous
  Country: US (occurrence: US)
  Receive Date: 20170918
  Receipt Date: 20170918
  Transmission Date: 20171128
  Serious: No
  Sender: FDA-Public Use
  Company Number: None

PATIENT
  Age: 66 Year
  Sex: Female

DRUGS (1)
  1. FENOFIBRIC ACID DELAYED-RELEASE [Suspect]
     Active Substance: CHOLINE FENOFIBRATE
     Route: 048

REACTIONS (1)
  - Medication residue present [None]

NARRATIVE: CASE EVENT DATE: 20170918
